FAERS Safety Report 4353847-4 (Version None)
Quarter: 2004Q2

REPORT INFORMATION
  Report Type: 
  Country: None (occurrence: None)
  Receive Date: 20040430
  Receipt Date: 20040423
  Transmission Date: 20050107
  Serious: Yes (Other)
  Sender: FDA-Public Use
  Company Number: 2004-04-1335

PATIENT
  Age: 40 Year
  Sex: Male

DRUGS (3)
  1. AERIUS (DESLORATADINE) TABLETS [Suspect]
     Indication: DYSHIDROSIS
     Dosage: ORAL
     Route: 048
     Dates: start: 20040404
  2. . [Concomitant]
  3. VALACYCLOVIR HCL [Concomitant]

REACTIONS (3)
  - DRY SKIN [None]
  - ECZEMA VESICULAR [None]
  - SKIN DESQUAMATION [None]
